FAERS Safety Report 8724353 (Version 2)
Quarter: 2013Q4

REPORT INFORMATION
  Report Type: Report from Study
  Country: JP (occurrence: JP)
  Receive Date: 20120815
  Receipt Date: 20131106
  Transmission Date: 20140711
  Serious: Yes (Hospitalization, Other)
  Sender: FDA-Public Use
  Company Number: JP-009507513-1208JPN005166

PATIENT
  Age: 66 Year
  Sex: Male
  Weight: 62 kg

DRUGS (15)
  1. PEGINTRON [Suspect]
     Indication: HEPATITIS C
     Dosage: 1.5MCG/KG/WEEK
     Route: 058
     Dates: start: 20120111, end: 20120620
  2. REBETOL [Suspect]
     Indication: HEPATITIS C
     Route: 048
     Dates: start: 20120111, end: 20120131
  3. REBETOL [Suspect]
     Indication: HEPATITIS C
     Route: 048
     Dates: start: 20120201, end: 20120214
  4. REBETOL [Suspect]
     Route: 048
     Dates: start: 20120215, end: 20120508
  5. REBETOL [Suspect]
     Route: 048
     Dates: start: 20120509
  6. REBETOL [Suspect]
     Route: 048
     Dates: start: 20120516, end: 20120626
  7. TELAVIC [Suspect]
     Indication: HEPATITIS C
     Route: 048
     Dates: start: 20120111
  8. TELAVIC [Suspect]
     Route: 048
     Dates: start: 20120215, end: 20120403
  9. CELECOX [Concomitant]
     Indication: BACK PAIN
     Route: 048
  10. GASTROM [Concomitant]
     Indication: GASTRITIS
     Route: 048
  11. SEIBULE [Concomitant]
     Indication: DIABETES MELLITUS
     Route: 048
  12. OMEPRAL [Concomitant]
     Indication: GASTROOESOPHAGEAL REFLUX DISEASE
     Route: 048
  13. LASIX (FUROSEMIDE) [Concomitant]
     Indication: OEDEMA
     Route: 048
  14. MAGMITT [Concomitant]
     Indication: CONSTIPATION
     Route: 048
  15. [THERAPY UNSPECIFIED] [Concomitant]
     Indication: ASTHENIA
     Route: 048

REACTIONS (3)
  - Prostatitis [Recovered/Resolved]
  - Anaemia [Not Recovered/Not Resolved]
  - Anaemia [Not Recovered/Not Resolved]
